FAERS Safety Report 20870473 (Version 3)
Quarter: 2025Q2

REPORT INFORMATION
  Report Type: Spontaneous
  Country: IT (occurrence: IT)
  Receive Date: 20220525
  Receipt Date: 20250621
  Transmission Date: 20250716
  Serious: Yes (Other)
  Sender: AUROBINDO
  Company Number: IT-Orion Corporation ORION PHARMA-LEV 2022-0009

PATIENT
  Age: 50 Year
  Sex: Male

DRUGS (24)
  1. FUROSEMIDE [Suspect]
     Active Substance: FUROSEMIDE
     Indication: Diuretic therapy
     Dosage: 250 MILLIGRAM, TWO TIMES A DAY
     Route: 065
     Dates: start: 20200512
  2. FUROSEMIDE [Suspect]
     Active Substance: FUROSEMIDE
     Indication: Liver injury
  3. FUROSEMIDE [Suspect]
     Active Substance: FUROSEMIDE
     Indication: Acute kidney injury
  4. FUROSEMIDE [Suspect]
     Active Substance: FUROSEMIDE
     Indication: Cardiac failure acute
  5. ENOXIMONE [Suspect]
     Active Substance: ENOXIMONE
     Indication: Cardiac failure acute
     Route: 065
     Dates: start: 20200513
  6. ENOXIMONE [Suspect]
     Active Substance: ENOXIMONE
     Indication: Acute kidney injury
  7. ENOXIMONE [Suspect]
     Active Substance: ENOXIMONE
     Indication: Liver injury
  8. LEVOSIMENDAN [Suspect]
     Active Substance: LEVOSIMENDAN
     Indication: Cardiac failure acute
     Route: 065
     Dates: start: 20200512
  9. LEVOSIMENDAN [Suspect]
     Active Substance: LEVOSIMENDAN
     Indication: Acute kidney injury
  10. LEVOSIMENDAN [Suspect]
     Active Substance: LEVOSIMENDAN
     Indication: Liver injury
  11. METOLAZONE [Suspect]
     Active Substance: METOLAZONE
     Indication: Cardiac failure acute
     Dosage: 5 MILLIGRAM, TWO TIMES A DAY (24 H DIURESIS 1300 ML)
     Route: 065
     Dates: start: 20200513
  12. METOLAZONE [Suspect]
     Active Substance: METOLAZONE
     Indication: Acute kidney injury
  13. METOLAZONE [Suspect]
     Active Substance: METOLAZONE
     Indication: Liver injury
  14. NOREPINEPHRINE BITARTRATE [Suspect]
     Active Substance: NOREPINEPHRINE BITARTRATE
     Indication: Cardiac failure acute
     Route: 065
     Dates: start: 20200515
  15. NOREPINEPHRINE BITARTRATE [Suspect]
     Active Substance: NOREPINEPHRINE BITARTRATE
     Indication: Acute kidney injury
  16. NOREPINEPHRINE BITARTRATE [Suspect]
     Active Substance: NOREPINEPHRINE BITARTRATE
     Indication: Liver injury
  17. SPIRONOLACTONE [Suspect]
     Active Substance: SPIRONOLACTONE
     Indication: Diuretic therapy
     Route: 065
     Dates: start: 20200512
  18. SPIRONOLACTONE [Suspect]
     Active Substance: SPIRONOLACTONE
     Indication: Cardiac failure acute
  19. SPIRONOLACTONE [Suspect]
     Active Substance: SPIRONOLACTONE
     Indication: Acute kidney injury
  20. SPIRONOLACTONE [Suspect]
     Active Substance: SPIRONOLACTONE
     Indication: Liver injury
  21. WARFARIN [Suspect]
     Active Substance: WARFARIN
     Indication: Anticoagulant therapy
     Route: 016
     Dates: start: 202005
  22. WARFARIN [Suspect]
     Active Substance: WARFARIN
     Indication: Cardiac failure acute
  23. WARFARIN [Suspect]
     Active Substance: WARFARIN
     Indication: Acute kidney injury
  24. WARFARIN [Suspect]
     Active Substance: WARFARIN
     Indication: Liver injury

REACTIONS (4)
  - Low cardiac output syndrome [Unknown]
  - Transient ischaemic attack [Unknown]
  - Embolic stroke [Unknown]
  - Drug ineffective [Unknown]

NARRATIVE: CASE EVENT DATE: 20200501
